FAERS Safety Report 9940807 (Version 1)
Quarter: 2014Q1

REPORT INFORMATION
  Report Type: Spontaneous
  Country: US (occurrence: US)
  Receive Date: 20140303
  Receipt Date: 20140303
  Transmission Date: 20141002
  Serious: No
  Sender: FDA-Public Use
  Company Number: US-PFIZER INC-2014058551

PATIENT
  Age: 55 Year
  Sex: Female
  Weight: 68.03 kg

DRUGS (5)
  1. MORPHINE SULFATE [Suspect]
     Indication: PAIN IN EXTREMITY
     Dosage: UNK
  2. OXYCONTIN [Suspect]
     Indication: PAIN IN EXTREMITY
     Dosage: UNK
  3. LUNESTA [Concomitant]
     Indication: SLEEP DISORDER
     Dosage: 3 MG, DAILY AT NIGHT
  4. VALIUM [Concomitant]
     Indication: SLEEP DISORDER
     Dosage: 5 MG, DAILY AT NIGHT
  5. SUBOXONE [Concomitant]
     Indication: PAIN
     Dosage: 8 MG, DAILY

REACTIONS (1)
  - Drug ineffective [Unknown]
